FAERS Safety Report 9801469 (Version 3)
Quarter: 2014Q1

REPORT INFORMATION
  Report Type: Spontaneous
  Country: US (occurrence: US)
  Receive Date: 20140107
  Receipt Date: 20140207
  Transmission Date: 20141002
  Serious: No
  Sender: FDA-Public Use
  Company Number: US-009507513-1312USA012530

PATIENT
  Age: 63 Year
  Sex: Male
  Weight: 121.1 kg

DRUGS (3)
  1. JANUMET [Suspect]
     Indication: TYPE 1 DIABETES MELLITUS
     Dosage: 50/500; TWICE DAILY
     Route: 048
     Dates: start: 20130514, end: 20131021
  2. JANUVIA [Suspect]
     Dosage: UNK
     Route: 048
     Dates: start: 20131020
  3. GLUMETZA [Concomitant]
     Dosage: UNKNOWN

REACTIONS (8)
  - Throat irritation [Unknown]
  - Insomnia [Unknown]
  - Electrolyte depletion [Unknown]
  - Dizziness [Recovered/Resolved]
  - Decreased appetite [Recovered/Resolved]
  - Vomiting [Unknown]
  - Diarrhoea [Recovered/Resolved]
  - Off label use [Unknown]
